FAERS Safety Report 7811095-7 (Version None)
Quarter: 2011Q4

REPORT INFORMATION
  Report Type: 
  Country: None (occurrence: None)
  Receive Date: 20111011
  Receipt Date: 20110926
  Transmission Date: 20120403
  Serious: Yes (Hospitalization, Other)
  Sender: FDA-Public Use
  Company Number: DSJ-2011-21233

PATIENT
  Age: 8 Decade
  Sex: Female

DRUGS (6)
  1. ACETYLSALICYLIC ACID/ISOSORBIDE [Concomitant]
  2. MEDICINE FOR CARDIAC DISORDER [Concomitant]
  3. BENICAR HCT [Suspect]
     Indication: HYPERTENSION
     Dosage: 40/12.5 MG (1 IN 1 D),PER ORAL : 80/25 MG (1 IN 1 D), PER ORAL : 40/12.5 MG (1 IN 1 D), PER ORAL
     Route: 048
     Dates: start: 20090101, end: 20110801
  4. BENICAR HCT [Suspect]
     Indication: HYPERTENSION
     Dosage: 40/12.5 MG (1 IN 1 D),PER ORAL : 80/25 MG (1 IN 1 D), PER ORAL : 40/12.5 MG (1 IN 1 D), PER ORAL
     Route: 048
     Dates: start: 20110801, end: 20110801
  5. BENICAR HCT [Suspect]
     Indication: HYPERTENSION
     Dosage: 40/12.5 MG (1 IN 1 D),PER ORAL : 80/25 MG (1 IN 1 D), PER ORAL : 40/12.5 MG (1 IN 1 D), PER ORAL
     Route: 048
     Dates: start: 20110801
  6. ALISKIREN/HYDROCHLOROTHIAZIDE [Concomitant]

REACTIONS (4)
  - INSOMNIA [None]
  - BLOOD PRESSURE SYSTOLIC INCREASED [None]
  - VISUAL IMPAIRMENT [None]
  - DRUG INEFFECTIVE [None]
